FAERS Safety Report 10077149 (Version 1)
Quarter: 2014Q2

REPORT INFORMATION
  Report Type: Spontaneous
  Country: US (occurrence: US)
  Receive Date: 20140414
  Receipt Date: 20140414
  Transmission Date: 20141212
  Serious: Yes (Other)
  Sender: FDA-Public Use
  Company Number: US-DSJP-DSU-2014-104767

PATIENT
  Sex: 0

DRUGS (2)
  1. WELCHOL [Suspect]
     Indication: HYPERCHOLESTEROLAEMIA
     Dosage: UNK
     Route: 048
  2. WELCHOL [Suspect]
     Indication: DIARRHOEA

REACTIONS (3)
  - Hyperoxalaemia [Not Recovered/Not Resolved]
  - Oxalosis [Not Recovered/Not Resolved]
  - Off label use [Not Recovered/Not Resolved]
